FAERS Safety Report 6601879-5 (Version None)
Quarter: 2010Q1

REPORT INFORMATION
  Report Type: 
  Country: None (occurrence: None)
  Receive Date: 20100218
  Receipt Date: 20100204
  Transmission Date: 20100710
  Serious: Yes (Hospitalization)
  Sender: FDA-Public Use
  Company Number: 006355

PATIENT
  Sex: Male

DRUGS (5)
  1. CERTOLIZUMAB PEGOL (CERTOLIZUMAB PEGOL) [Suspect]
     Indication: CROHN'S DISEASE
     Dosage: (400 MG 1 X/2 WEEKS, CDP87032 SUBCUTANEOUS), (400 MG  1X/2 WEEKS SUBCUTANEOUS),  (400 MG  1X/MONTH S
     Route: 058
     Dates: start: 20040407, end: 20040505
  2. CERTOLIZUMAB PEGOL (CERTOLIZUMAB PEGOL) [Suspect]
     Indication: CROHN'S DISEASE
     Dosage: (400 MG 1 X/2 WEEKS, CDP87032 SUBCUTANEOUS), (400 MG  1X/2 WEEKS SUBCUTANEOUS),  (400 MG  1X/MONTH S
     Route: 058
     Dates: start: 20040602, end: 20040823
  3. CERTOLIZUMAB PEGOL (CERTOLIZUMAB PEGOL) [Suspect]
     Indication: CROHN'S DISEASE
     Dosage: (400 MG 1 X/2 WEEKS, CDP87032 SUBCUTANEOUS), (400 MG  1X/2 WEEKS SUBCUTANEOUS),  (400 MG  1X/MONTH S
     Route: 058
     Dates: start: 20040908, end: 20041006
  4. CERTOLIZUMAB PEGOL (CERTOLIZUMAB PEGOL) [Suspect]
     Indication: CROHN'S DISEASE
     Dosage: (400 MG 1 X/2 WEEKS, CDP87032 SUBCUTANEOUS), (400 MG  1X/2 WEEKS SUBCUTANEOUS),  (400 MG  1X/MONTH S
     Route: 058
     Dates: start: 20041103
  5. THIOPRINE [Concomitant]

REACTIONS (1)
  - NEPHROLITHIASIS [None]
